FAERS Safety Report 18322935 (Version 1)
Quarter: 2020Q3

REPORT INFORMATION
  Report Type: Spontaneous
  Country: US (occurrence: US)
  Receive Date: 20200929
  Receipt Date: 20200929
  Transmission Date: 20201103
  Serious: Yes (Hospitalization, Other)
  Sender: FDA-Public Use
  Company Number: US-COOPERSURGICAL, INC.-US-2020CPS001334

PATIENT
  Age: 36 Year
  Sex: Female
  Weight: 107.3 kg

DRUGS (2)
  1. PARAGARD T 380A [Suspect]
     Active Substance: COPPER
     Indication: CONTRACEPTION
     Dosage: UNK
     Route: 015
     Dates: start: 20181227, end: 20200827
  2. LABETALOL [Concomitant]
     Active Substance: LABETALOL\LABETALOL HYDROCHLORIDE
     Indication: HYPERTENSION
     Dosage: UNK
     Route: 065

REACTIONS (4)
  - Pregnancy with contraceptive device [Recovered/Resolved]
  - Premature delivery [Recovered/Resolved]
  - Drug ineffective [Unknown]
  - Salpingectomy [Recovered/Resolved]

NARRATIVE: CASE EVENT DATE: 202001
